FAERS Safety Report 7327368-0 (Version None)
Quarter: 2011Q1

REPORT INFORMATION
  Report Type: 
  Country: None (occurrence: None)
  Receive Date: 20110302
  Receipt Date: 20110204
  Transmission Date: 20110831
  Serious: No
  Sender: FDA-Public Use
  Company Number: US-B.I. PHARMACEUTICALS,INC./RIDGEFIELD-2011-BP-03379BP

PATIENT
  Sex: Male

DRUGS (6)
  1. MULTIVITAMIN [Concomitant]
     Indication: PROPHYLAXIS
  2. MULTAQ [Concomitant]
     Indication: CARDIAC DISORDER
  3. PRADAXA [Suspect]
     Indication: ANTICOAGULANT THERAPY
     Dosage: 300 MG
     Route: 048
     Dates: start: 20101201
  4. METFORMIN [Concomitant]
     Indication: DIABETES MELLITUS
  5. CRESTOR [Concomitant]
     Indication: BLOOD CHOLESTEROL INCREASED
  6. ALLOPURINOL [Concomitant]
     Indication: NEPHROLITHIASIS

REACTIONS (3)
  - THROAT IRRITATION [None]
  - PRODUCTIVE COUGH [None]
  - NASOPHARYNGITIS [None]
